FAERS Safety Report 6298777-6 (Version None)
Quarter: 2009Q3

REPORT INFORMATION
  Report Type: 
  Country: None (occurrence: None)
  Receive Date: 20090805
  Receipt Date: 20090805
  Transmission Date: 20100115
  Serious: Yes (Life-Threatening, Other)
  Sender: FDA-Public Use
  Company Number: None

PATIENT
  Sex: Male
  Weight: 79.3795 kg

DRUGS (1)
  1. AMIODARONE HCL [Suspect]
     Indication: ATRIAL FIBRILLATION
     Dosage: 200 MIL DAILY
     Dates: start: 20030101, end: 20060101

REACTIONS (7)
  - ASTHENIA [None]
  - COUGH [None]
  - DYSPNOEA [None]
  - EYELID DISORDER [None]
  - GAIT DISTURBANCE [None]
  - LUNG DISORDER [None]
  - PAIN [None]
